FAERS Safety Report 16570927 (Version 1)
Quarter: 2019Q3

REPORT INFORMATION
  Report Type: Spontaneous
  Country: US (occurrence: US)
  Receive Date: 20190712
  Receipt Date: 20190712
  Transmission Date: 20191004
  Serious: Yes (Other)
  Sender: FDA-Public Use
  Company Number: None

PATIENT
  Age: 69 Year
  Sex: Male
  Weight: 117.45 kg

DRUGS (7)
  1. ASPIRIN 81MG [Concomitant]
     Active Substance: ASPIRIN
  2. DEXTROAMPHET SACCHARAT, AMPHET ASPARTATE, DEXTROAMPHET SULFATE AND AMPHET SULFAT [Suspect]
     Active Substance: AMPHETAMINE ASPARTATE\AMPHETAMINE SULFATE\DEXTROAMPHETAMINE SACCHARATE\DEXTROAMPHETAMINE SULFATE
     Indication: ATTENTION DEFICIT/HYPERACTIVITY DISORDER
     Dosage: ?          QUANTITY:1 TABLET(S);?
     Route: 048
  3. METOPROLOL SUCCINATE 25MG [Concomitant]
     Active Substance: METOPROLOL SUCCINATE
  4. PRAVASTATIN SODIUM 40MG [Concomitant]
     Active Substance: PRAVASTATIN SODIUM
  5. ENALAPRIL MALEATE 10MG [Concomitant]
  6. VITAMIN D [Concomitant]
     Active Substance: VITAMIN D NOS
  7. DOXAZOSIN 8MG [Concomitant]

REACTIONS (5)
  - Fatigue [None]
  - Body temperature increased [None]
  - Product substitution issue [None]
  - Heart rate irregular [None]
  - Thirst [None]

NARRATIVE: CASE EVENT DATE: 20190603
